FAERS Safety Report 18478081 (Version 2)
Quarter: 2020Q4

REPORT INFORMATION
  Report Type: Spontaneous
  Country: US (occurrence: US)
  Receive Date: 20201108
  Receipt Date: 20201227
  Transmission Date: 20210114
  Serious: No
  Sender: FDA-Public Use
  Company Number: US-ASTRAZENECA-2020SF39729

PATIENT
  Sex: Female

DRUGS (2)
  1. FASENRA [Suspect]
     Active Substance: BENRALIZUMAB
     Indication: ASTHMA
     Dosage: 30.0MG UNKNOWN
     Route: 058
  2. FASENRA [Suspect]
     Active Substance: BENRALIZUMAB
     Indication: BRONCHIECTASIS
     Dosage: 30.0MG UNKNOWN
     Route: 058

REACTIONS (4)
  - Device leakage [Unknown]
  - Burning sensation [Unknown]
  - Needle track marks [Unknown]
  - Wrong technique in device usage process [Unknown]
